FAERS Safety Report 6997597-4 (Version None)
Quarter: 2010Q3

REPORT INFORMATION
  Report Type: 
  Country: None (occurrence: None)
  Receive Date: 20100918
  Receipt Date: 20091124
  Transmission Date: 20110219
  Serious: No
  Sender: FDA-Public Use
  Company Number: US-WYE-H12141709

PATIENT
  Age: 71 Year
  Sex: Female

DRUGS (8)
  1. PRISTIQ [Suspect]
     Indication: DEPRESSION
     Route: 048
     Dates: start: 20091107, end: 20091121
  2. PRISTIQ [Suspect]
     Indication: ANXIETY
     Route: 048
     Dates: start: 20091122, end: 20091123
  3. LEXAPRO [Suspect]
     Indication: DEPRESSION
     Dosage: UNKNOWN
     Dates: end: 20090101
  4. LEXAPRO [Suspect]
     Dosage: ^1/2^ AMT UNKNOWN
     Dates: start: 20091108, end: 20091109
  5. DIOVAN [Suspect]
     Indication: HYPERTENSION
     Dosage: UNKNOWN
  6. TRAMADOL [Concomitant]
     Indication: PAIN
     Dosage: UNKNOWN
  7. DIAZEPAM [Suspect]
     Indication: SLEEP DISORDER
     Dosage: UNKNOWN
  8. LIPITOR [Suspect]
     Indication: HYPERCHOLESTEROLAEMIA
     Dosage: UNKNOWN

REACTIONS (6)
  - ARTHRALGIA [None]
  - DRUG WITHDRAWAL SYNDROME [None]
  - FEELING HOT [None]
  - INSOMNIA [None]
  - PAIN IN EXTREMITY [None]
  - PALPITATIONS [None]
